FAERS Safety Report 7202957-2 (Version None)
Quarter: 2010Q4

REPORT INFORMATION
  Report Type: 
  Country: None (occurrence: None)
  Receive Date: 20101229
  Receipt Date: 20101221
  Transmission Date: 20110411
  Serious: Yes (Other)
  Sender: FDA-Public Use
  Company Number: US-PFIZER INC-2010177630

PATIENT
  Age: 19 Year
  Sex: Male
  Weight: 54.422 kg

DRUGS (1)
  1. CHAPSTICK ULTRA SPF 30 [Suspect]
     Indication: LIP DRY
     Dosage: UNK
     Route: 061
     Dates: start: 20101214, end: 20101220

REACTIONS (5)
  - APPLICATION SITE ERYTHEMA [None]
  - APPLICATION SITE HYPERSENSITIVITY [None]
  - APPLICATION SITE SWELLING [None]
  - APPLICATION SITE URTICARIA [None]
  - INTENTIONAL DRUG MISUSE [None]
